FAERS Safety Report 25527804 (Version 1)
Quarter: 2025Q3

REPORT INFORMATION
  Report Type: Spontaneous
  Country: CN (occurrence: CN)
  Receive Date: 20250708
  Receipt Date: 20250708
  Transmission Date: 20251020
  Serious: Yes (Hospitalization)
  Sender: NOVO NORDISK
  Company Number: None

PATIENT
  Age: 29 Year
  Sex: Female
  Weight: 74 kg

DRUGS (1)
  1. INSULIN DETEMIR [Suspect]
     Active Substance: INSULIN DETEMIR
     Indication: Blood glucose abnormal
     Dosage: 10 IU, QD ONCE A NIGHT
     Route: 058
     Dates: start: 20250614, end: 20250624

REACTIONS (7)
  - Urinary tract infection [Unknown]
  - Gestational diabetes [Unknown]
  - Injection site induration [Recovering/Resolving]
  - Injection site pruritus [Recovering/Resolving]
  - Injection site hypersensitivity [Recovering/Resolving]
  - Product use in unapproved indication [Recovering/Resolving]
  - Maternal exposure during pregnancy [Recovering/Resolving]

NARRATIVE: CASE EVENT DATE: 20250615
